FAERS Safety Report 5002266-6 (Version None)
Quarter: 2006Q2

REPORT INFORMATION
  Report Type: 
  Country: None (occurrence: None)
  Receive Date: 20060502
  Receipt Date: 20060417
  Transmission Date: 20061013
  Serious: Yes (Other)
  Sender: FDA-Public Use
  Company Number: HQYWE104002MAR06

PATIENT
  Age: 21 Month
  Sex: Male
  Weight: 12.7 kg

DRUGS (1)
  1. REFACTO [Suspect]
     Indication: FACTOR VIII DEFICIENCY
     Dosage: 250-544 IU ON DEMAND THERAPY, INTRAVENOUS
     Route: 042
     Dates: start: 20040904, end: 20060306

REACTIONS (5)
  - COAGULATION FACTOR VIII LEVEL DECREASED [None]
  - FACTOR VIII INHIBITION [None]
  - HAEMARTHROSIS [None]
  - MOUTH HAEMORRHAGE [None]
  - SOFT TISSUE HAEMORRHAGE [None]
